FAERS Safety Report 7815279-3 (Version None)
Quarter: 2011Q4

REPORT INFORMATION
  Report Type: 
  Country: None (occurrence: None)
  Receive Date: 20111014
  Receipt Date: 20111005
  Transmission Date: 20120403
  Serious: Yes (Hospitalization)
  Sender: FDA-Public Use
  Company Number: DE-ACTELION-A-CH2011-55039

PATIENT
  Age: 57 Year
  Sex: Male

DRUGS (1)
  1. TRACLEER [Suspect]
     Indication: PRODUCT USED FOR UNKNOWN INDICATION
     Dosage: UNK MG, UNK
     Route: 048

REACTIONS (5)
  - HEPATIC CIRRHOSIS [None]
  - LIVER FUNCTION TEST ABNORMAL [None]
  - DYSPNOEA [None]
  - FLUID RETENTION [None]
  - ASCITES [None]
